FAERS Safety Report 9997342 (Version 1)
Quarter: 2014Q1

REPORT INFORMATION
  Report Type: Spontaneous
  Country: US (occurrence: US)
  Receive Date: 20140311
  Receipt Date: 20140311
  Transmission Date: 20141002
  Serious: No
  Sender: FDA-Public Use
  Company Number: US-GLAXOSMITHKLINE-A1036761A

PATIENT
  Age: 60 Year
  Sex: Female

DRUGS (2)
  1. NICORETTE FRESHMINT 2MG [Suspect]
     Indication: EX-TOBACCO USER
  2. NICORETTE OTC 4MG [Suspect]
     Indication: EX-TOBACCO USER
     Dates: start: 2003

REACTIONS (2)
  - Intentional drug misuse [Unknown]
  - Drug administration error [Unknown]
